FAERS Safety Report 24073519 (Version 1)
Quarter: 2024Q3

REPORT INFORMATION
  Report Type: Spontaneous
  Country: TW (occurrence: TW)
  Receive Date: 20240710
  Receipt Date: 20240710
  Transmission Date: 20241017
  Serious: Yes (Life-Threatening)
  Sender: BAYER
  Company Number: TW-BAYER-2024A098617

PATIENT
  Age: 58 Year
  Sex: Female

DRUGS (1)
  1. ULTRAVIST [Suspect]
     Active Substance: IOPROMIDE
     Dosage: 80 ML, ONCE
     Dates: start: 20240618, end: 20240618

REACTIONS (6)
  - Contrast media allergy [None]
  - Pharyngeal swelling [None]
  - Throat irritation [None]
  - Orbital oedema [None]
  - Nasal obstruction [None]
  - Sneezing [None]

NARRATIVE: CASE EVENT DATE: 20240618
